FAERS Safety Report 6202424-9 (Version None)
Quarter: 2009Q2

REPORT INFORMATION
  Report Type: 
  Country: None (occurrence: None)
  Receive Date: 20090526
  Receipt Date: 20090514
  Transmission Date: 20091009
  Serious: Yes (Other)
  Sender: FDA-Public Use
  Company Number: TH-PFIZER INC-2009179240

PATIENT
  Age: 9 Year

DRUGS (3)
  1. ZOLOFT [Suspect]
     Indication: OBSESSIVE-COMPULSIVE DISORDER
     Dosage: 50 MG, 1X/DAY
     Route: 048
     Dates: start: 20090222
  2. SERETIDE [Concomitant]
     Indication: HYPERSENSITIVITY
     Dosage: UNK
     Route: 045
     Dates: start: 20090101, end: 20090101
  3. MEIACT [Concomitant]
     Indication: NASOPHARYNGITIS
     Route: 048
     Dates: start: 20090101, end: 20090101

REACTIONS (3)
  - HYPOAESTHESIA [None]
  - MUSCLE SPASTICITY [None]
  - YAWNING [None]
